FAERS Safety Report 8111318-3 (Version None)
Quarter: 2012Q1

REPORT INFORMATION
  Report Type: 
  Country: None (occurrence: None)
  Receive Date: 20120203
  Receipt Date: 20110830
  Transmission Date: 20120608
  Serious: No
  Sender: FDA-Public Use
  Company Number: US-GLAXOSMITHKLINE-A0942854A

PATIENT
  Age: 49 Year
  Sex: Female

DRUGS (5)
  1. LAMICTAL [Suspect]
     Indication: ANXIETY
     Dosage: 25MG PER DAY
     Route: 048
     Dates: start: 20110701, end: 20110817
  2. AMBIEN [Concomitant]
  3. CYMBALTA [Concomitant]
  4. NEXIUM [Concomitant]
  5. SEROQUEL XR [Concomitant]

REACTIONS (2)
  - DRY MOUTH [None]
  - OEDEMA PERIPHERAL [None]
